FAERS Safety Report 5475845-X (Version None)
Quarter: 2007Q4

REPORT INFORMATION
  Report Type: 
  Country: None (occurrence: None)
  Receive Date: 20071003
  Receipt Date: 20070924
  Transmission Date: 20080405
  Serious: Yes (Other)
  Sender: FDA-Public Use
  Company Number: US-AMGEN-STX244485

PATIENT
  Sex: Male

DRUGS (3)
  1. ENBREL [Suspect]
     Indication: PSORIASIS
     Route: 065
     Dates: start: 20040101
  2. ANTIHYPERTENSIVE MEDICATION NOS [Concomitant]
     Route: 065
  3. UNSPECIFIED MEDICATION [Concomitant]

REACTIONS (1)
  - INTESTINAL RESECTION [None]
